FAERS Safety Report 24611660 (Version 1)
Quarter: 2024Q4

REPORT INFORMATION
  Report Type: Spontaneous
  Country: PL (occurrence: PL)
  Receive Date: 20241113
  Receipt Date: 20241113
  Transmission Date: 20250115
  Serious: Yes (Life-Threatening)
  Sender: AMGEN
  Company Number: None

PATIENT
  Age: 32 Year
  Sex: Male
  Weight: 107 kg

DRUGS (1)
  1. VECTIBIX [Suspect]
     Active Substance: PANITUMUMAB
     Indication: Colorectal cancer
     Dosage: DRUG VECTIBIX (PANITUMUMABUM) ADMINISTERED AS PART OF THE FIFTH COURSE OF FOLFOX+ CHEMOTHERAPY.
     Route: 040
     Dates: start: 20200729, end: 20200729

REACTIONS (3)
  - Groin pain [Recovering/Resolving]
  - Pain in extremity [Recovering/Resolving]
  - Computerised tomogram abnormal [Recovering/Resolving]

NARRATIVE: CASE EVENT DATE: 20200701
